FAERS Safety Report 5301432-X (Version None)
Quarter: 2007Q2

REPORT INFORMATION
  Report Type: 
  Country: None (occurrence: None)
  Receive Date: 20070418
  Receipt Date: 20070410
  Transmission Date: 20071010
  Serious: Yes (Other)
  Sender: FDA-Public Use
  Company Number: US-GENENTECH-239713

PATIENT
  Sex: Female
  Weight: 68.027 kg

DRUGS (3)
  1. NUTROPIN AQ [Suspect]
     Indication: HYPOTHALAMO-PITUITARY DISORDER
     Dosage: 0.2 MG, QD
     Route: 058
     Dates: start: 19961010
  2. TOPAMAX [Concomitant]
     Indication: DRUG USE FOR UNKNOWN INDICATION
     Dates: start: 19990101
  3. TEGRETOL [Concomitant]
     Indication: DRUG USE FOR UNKNOWN INDICATION
     Dates: start: 19990101

REACTIONS (1)
  - BURNING SENSATION [None]
